FAERS Safety Report 6194787-8 (Version None)
Quarter: 2009Q2

REPORT INFORMATION
  Report Type: 
  Country: None (occurrence: None)
  Receive Date: 20090515
  Receipt Date: 20090515
  Transmission Date: 20091009
  Serious: Yes (Hospitalization, Other)
  Sender: FDA-Public Use
  Company Number: None

PATIENT
  Age: 68 Year
  Sex: Male
  Weight: 95.2554 kg

DRUGS (3)
  1. REMICADE [Suspect]
     Indication: ANKYLOSING SPONDYLITIS
     Dosage: 5MG/ KG 2 WEEKS 4 WEEKS IV DRIP
     Route: 041
     Dates: start: 20090209, end: 20090209
  2. REMICADE [Suspect]
     Dates: start: 20090309, end: 20090309
  3. . [Concomitant]

REACTIONS (7)
  - BLOOD CREATININE INCREASED [None]
  - BRONCHIAL HYPERREACTIVITY [None]
  - GASTROOESOPHAGEAL REFLUX DISEASE [None]
  - OEDEMA PERIPHERAL [None]
  - PULMONARY HYPERTENSION [None]
  - RESPIRATORY DISTRESS [None]
  - SINUSITIS [None]
